FAERS Safety Report 4388778-7 (Version None)
Quarter: 2004Q3

REPORT INFORMATION
  Report Type: 
  Country: None (occurrence: None)
  Receive Date: 20040701
  Receipt Date: 20040628
  Transmission Date: 20050211
  Serious: Yes (Other)
  Sender: FDA-Public Use
  Company Number: NO-MERCK-0406NOR00025

PATIENT
  Age: 60 Year
  Sex: Female

DRUGS (3)
  1. ASPIRIN AND MAGNESIUM OXIDE [Concomitant]
     Indication: PROPHYLAXIS
     Route: 065
  2. CELECOXIB [Concomitant]
     Indication: ARTHRITIS
     Route: 048
     Dates: start: 20020101
  3. COZAAR [Suspect]
     Indication: HYPERTENSION
     Route: 048
     Dates: start: 20021217, end: 20030107

REACTIONS (1)
  - PERIODONTITIS [None]
